FAERS Safety Report 25169879 (Version 1)
Quarter: 2025Q2

REPORT INFORMATION
  Report Type: Spontaneous
  Country: US (occurrence: US)
  Receive Date: 20250407
  Receipt Date: 20250407
  Transmission Date: 20250716
  Serious: No
  Sender: MERCK SHARP AND DOHME
  Company Number: US-009507513-2265220

PATIENT
  Sex: Female
  Weight: 65.8 kg

DRUGS (25)
  1. SOTATERCEPT [Suspect]
     Active Substance: SOTATERCEPT
     Indication: Product used for unknown indication
     Route: 058
  2. SOTATERCEPT [Suspect]
     Active Substance: SOTATERCEPT
  3. SOTATERCEPT [Suspect]
     Active Substance: SOTATERCEPT
  4. SOTATERCEPT [Suspect]
     Active Substance: SOTATERCEPT
  5. TYVASO [Suspect]
     Active Substance: TREPROSTINIL
     Indication: Pulmonary arterial hypertension
     Dosage: CONCENTRATION: 0.6 MG/ML
     Route: 055
     Dates: start: 20230821
  6. DOXYCYCLINE HYCLATE [Concomitant]
     Active Substance: DOXYCYCLINE HYCLATE
  7. ALBUTEROL SULFATE [Concomitant]
     Active Substance: ALBUTEROL SULFATE
  8. vitamin d-400 [Concomitant]
  9. METOPROLOL SUCCINATE [Concomitant]
     Active Substance: METOPROLOL SUCCINATE
  10. OXYGEN [Concomitant]
     Active Substance: OXYGEN
  11. PREDNISONE [Concomitant]
     Active Substance: PREDNISONE
  12. LETAIRIS [Concomitant]
     Active Substance: AMBRISENTAN
  13. TORSEMIDE [Concomitant]
     Active Substance: TORSEMIDE
  14. ASPIRIN [Concomitant]
     Active Substance: ASPIRIN
  15. SPIRONOLACTONE [Concomitant]
     Active Substance: SPIRONOLACTONE
  16. MELOXICAM [Concomitant]
     Active Substance: MELOXICAM
  17. LACTASE [Concomitant]
     Active Substance: LACTASE
  18. VITAMINS [Concomitant]
     Active Substance: VITAMINS
  19. OMEPRAZOLE [Concomitant]
     Active Substance: OMEPRAZOLE
  20. POTASSIUM CHLORIDE [Concomitant]
     Active Substance: POTASSIUM CHLORIDE
  21. IMODIUM A-D [Concomitant]
     Active Substance: LOPERAMIDE HYDROCHLORIDE
  22. TYLENOL EXTRA STRENGTH [Concomitant]
     Active Substance: ACETAMINOPHEN
  23. OFEV [Concomitant]
     Active Substance: NINTEDANIB
  24. TADALAFIL [Concomitant]
     Active Substance: TADALAFIL
  25. BREO ELLIPTA [Concomitant]
     Active Substance: FLUTICASONE FUROATE\VILANTEROL TRIFENATATE

REACTIONS (1)
  - Injection site pain [Unknown]
